FAERS Safety Report 6577927-8 (Version None)
Quarter: 2010Q1

REPORT INFORMATION
  Report Type: 
  Country: None (occurrence: None)
  Receive Date: 20100211
  Receipt Date: 20100204
  Transmission Date: 20100710
  Serious: Yes (Hospitalization, Other)
  Sender: FDA-Public Use
  Company Number: JP-BAYER-200914144BYL

PATIENT
  Age: 61 Year
  Sex: Male
  Weight: 57 kg

DRUGS (6)
  1. NEXAVAR [Suspect]
     Indication: HEPATIC NEOPLASM MALIGNANT
     Dosage: UNIT DOSE: 200 MG
     Route: 048
     Dates: start: 20090722, end: 20091007
  2. NEXAVAR [Suspect]
     Dosage: UNIT DOSE: 200 MG
     Route: 048
     Dates: start: 20091111, end: 20091209
  3. CYTOTEC [Concomitant]
     Dosage: FROM BEFORE ADMINISTRATION
     Route: 048
     Dates: end: 20091021
  4. GASPORT-D [Concomitant]
     Dosage: FROM BEFORE ADMINISTRATION
     Route: 048
     Dates: end: 20090930
  5. UREPEARL [Concomitant]
     Indication: PROPHYLAXIS
     Route: 061
     Dates: start: 20090722
  6. TAKEPRON [Concomitant]
     Route: 048
     Dates: start: 20090930, end: 20091021

REACTIONS (4)
  - HEPATIC FUNCTION ABNORMAL [None]
  - JAUNDICE [None]
  - LIVER DISORDER [None]
  - PALMAR-PLANTAR ERYTHRODYSAESTHESIA SYNDROME [None]
